FAERS Safety Report 11823355 (Version 1)
Quarter: 2015Q4

REPORT INFORMATION
  Report Type: Spontaneous
  Country: US (occurrence: US)
  Receive Date: 20151210
  Receipt Date: 20151210
  Transmission Date: 20160305
  Serious: Yes (Other)
  Sender: FDA-Public Use
  Company Number: US-ROXANE LABORATORIES, INC.-2015-RO-02046RO

PATIENT
  Age: 32 Year
  Sex: Male

DRUGS (3)
  1. METHOTREXATE [Suspect]
     Active Substance: METHOTREXATE
     Indication: CENTRAL NERVOUS SYSTEM LYMPHOMA
     Route: 065
  2. ISOTONIC SODIUM BICARBONATE [Concomitant]
     Route: 042
  3. LEUCOVORIN. [Concomitant]
     Active Substance: LEUCOVORIN
     Indication: DRUG TOXICITY PROPHYLAXIS
     Route: 065

REACTIONS (3)
  - Acute kidney injury [Unknown]
  - Medication crystals in urine [Unknown]
  - Chemotherapeutic drug level above therapeutic [Unknown]
